FAERS Safety Report 9507916 (Version 1)
Quarter: 2013Q1

REPORT INFORMATION
  Report Type: Spontaneous
  Country: US (occurrence: None)
  Receive Date: 20130305
  Receipt Date: 20130305
  Transmission Date: 20140127
  Serious: Yes (Hospitalization)
  Sender: FDA-Public Use
  Company Number: 163-21880-12021726

PATIENT
  Age: 61 Year
  Sex: Female

DRUGS (22)
  1. REVLIMID (LENALIDOMIDE) (CAPSULES) [Suspect]
     Indication: PLASMA CELL LEUKAEMIA
     Dosage: 15 MG, QD X 14D/21D, 3 CYCLES
     Route: 048
     Dates: start: 20111118
  2. VELCADE (BORTEZOMIB) [Concomitant]
  3. DECADRON (DEXAMETHASONE) [Concomitant]
  4. SEPTRA DS (BACTRIM) [Concomitant]
  5. ACYCLOVIR (ACICLOVIR) (ACICLOVIR) [Concomitant]
  6. DIFLUCAN (FLUCONAZOLE) [Concomitant]
  7. CECLOR (CEFACLOR) [Concomitant]
  8. NOVOLIN R (INSULIN HUMAN) [Concomitant]
  9. ZYLOPRIM (ALLOPURINOL) [Concomitant]
  10. VYTORIN (INEGY) [Concomitant]
  11. ACTOS (PIOGLITZAZONE) [Concomitant]
  12. LOSARTAN (LOSARTAN) [Concomitant]
  13. PEPCID (FAMOTIDINE) [Concomitant]
  14. ZOLPIDEM (ZOLPIDEM) [Concomitant]
  15. ALBUTEROL (SALBUTAMOL) [Concomitant]
  16. SPIRIVA (TIOTROPIUM BROMIDE) [Concomitant]
  17. ATROVENT (IPRATROPIUM BROMIDE) [Concomitant]
  18. PREDNISONE (PREDNISONE) [Concomitant]
  19. COLACE (DOCUSATE SODIUM) [Concomitant]
  20. COMPAZINE (PROCHLORPERAZINE EDISYLATE) [Concomitant]
  21. PROZAC (FLUOXETINE HYDROCHLORIDE) [Concomitant]
  22. OS-CAL 500 (CALCIUM CARBONATE) [Concomitant]

REACTIONS (3)
  - Pneumonia [None]
  - Deep vein thrombosis [None]
  - Neuropathy peripheral [None]
